FAERS Safety Report 7800100-X (Version None)
Quarter: 2011Q4

REPORT INFORMATION
  Report Type: 
  Country: None (occurrence: None)
  Receive Date: 20111006
  Receipt Date: 20110928
  Transmission Date: 20120403
  Serious: Yes (Other)
  Sender: FDA-Public Use
  Company Number: US-JNJFOC-20110804488

PATIENT
  Age: 87 Year
  Sex: Female

DRUGS (2)
  1. STELARA [Suspect]
     Route: 058
     Dates: start: 20110727
  2. STELARA [Suspect]
     Indication: PSORIASIS
     Dosage: TWO INDUCTION DOSES
     Route: 058
     Dates: start: 20110601

REACTIONS (2)
  - VIRAL UPPER RESPIRATORY TRACT INFECTION [None]
  - NASOPHARYNGITIS [None]
